FAERS Safety Report 9806842 (Version 2)
Quarter: 2014Q1

REPORT INFORMATION
  Report Type: Report from Study
  Country: US (occurrence: US)
  Receive Date: 20140109
  Receipt Date: 20140120
  Transmission Date: 20141002
  Serious: Yes (Hospitalization)
  Sender: FDA-Public Use
  Company Number: US-BRISTOL-MYERS SQUIBB COMPANY-19970862

PATIENT
  Age: 61 Year
  Sex: Male
  Weight: 73.5 kg

DRUGS (1)
  1. IPILIMUMAB [Suspect]
     Indication: MALIGNANT MELANOMA
     Dosage: OVER 90MINS,Q12 WKS ON WKS 24,36,48+60?Q3 WEEKS X 4DOSES,TOTAL DOSE:207MG,LAST DOSE:7JAN14
     Route: 042
     Dates: start: 20131126

REACTIONS (3)
  - Dehydration [Recovering/Resolving]
  - Blood corticotrophin decreased [Not Recovered/Not Resolved]
  - Blood testosterone decreased [Not Recovered/Not Resolved]
